FAERS Safety Report 13465224 (Version 3)
Quarter: 2017Q2

REPORT INFORMATION
  Report Type: Spontaneous
  Country: FR (occurrence: FR)
  Receive Date: 20170421
  Receipt Date: 20170505
  Transmission Date: 20170830
  Serious: Yes (Death, Other)
  Sender: FDA-Public Use
  Company Number: FR-ASTRAZENECA-2017SE40701

PATIENT
  Age: 22309 Day
  Sex: Female

DRUGS (8)
  1. TAHOR [Concomitant]
     Active Substance: ATORVASTATIN CALCIUM
     Indication: DYSLIPIDAEMIA
     Route: 048
     Dates: start: 20170310
  2. BRILIQUE [Suspect]
     Active Substance: TICAGRELOR
     Indication: THROMBOSIS PROPHYLAXIS
     Route: 048
     Dates: start: 20170306, end: 20170331
  3. TENORMIN [Concomitant]
     Active Substance: ATENOLOL
     Indication: HYPERTENSION
     Route: 048
     Dates: end: 20170331
  4. KARDEGIC [Suspect]
     Active Substance: ASPIRIN LYSINE
     Indication: THROMBOSIS PROPHYLAXIS
     Route: 048
     Dates: start: 20170306, end: 20170331
  5. ARIXTRA [Suspect]
     Active Substance: FONDAPARINUX SODIUM
     Indication: THROMBOSIS PROPHYLAXIS
     Route: 058
     Dates: start: 20170310, end: 20170330
  6. LANSOPRAZOLE. [Concomitant]
     Active Substance: LANSOPRAZOLE
     Route: 048
  7. CALCIPARINE [Suspect]
     Active Substance: HEPARIN CALCIUM
     Dosage: 6000 UI
     Route: 040
     Dates: start: 20170331, end: 20170331
  8. TRIATEC [Concomitant]
     Active Substance: RAMIPRIL
     Indication: HYPERTENSION
     Route: 048
     Dates: start: 20170310, end: 20170331

REACTIONS (6)
  - Cerebellar haematoma [Fatal]
  - Brain herniation [Unknown]
  - Drug hypersensitivity [Unknown]
  - Rectal haemorrhage [Fatal]
  - Urticaria [Unknown]
  - Hypertension [Unknown]

NARRATIVE: CASE EVENT DATE: 20170311
